FAERS Safety Report 16678558 (Version 5)
Quarter: 2020Q3

REPORT INFORMATION
  Report Type: Spontaneous
  Country: US (occurrence: US)
  Receive Date: 20190807
  Receipt Date: 20200818
  Transmission Date: 20201102
  Serious: Yes (Death, Hospitalization, Other)
  Sender: FDA-Public Use
  Company Number: US-GILEAD-2019-0421725

PATIENT
  Age: 69 Year
  Sex: Male

DRUGS (25)
  1. AMITRIPTYLINE HCL [Concomitant]
     Active Substance: AMITRIPTYLINE
  2. LOMOTIL [Concomitant]
     Active Substance: ATROPINE SULFATE\DIPHENOXYLATE HYDROCHLORIDE
  3. IBUPROFEN. [Concomitant]
     Active Substance: IBUPROFEN
  4. FUROSEMIDE. [Concomitant]
     Active Substance: FUROSEMIDE
  5. CIPROFLOXACIN. [Concomitant]
     Active Substance: CIPROFLOXACIN
  6. TRAMADOL. [Concomitant]
     Active Substance: TRAMADOL
  7. BIKTARVY [Concomitant]
     Active Substance: BICTEGRAVIR SODIUM\EMTRICITABINE\TENOFOVIR ALAFENAMIDE FUMARATE
     Dosage: 1 DOSAGE FORM (50?200?25 MG), QD
     Route: 048
  8. CITALOPRAM [Concomitant]
     Active Substance: CITALOPRAM HYDROBROMIDE
  9. PANTOPRAZOLE [Concomitant]
     Active Substance: PANTOPRAZOLE
  10. PROAIR HFA [Concomitant]
     Active Substance: ALBUTEROL SULFATE
  11. ATRIPLA [Suspect]
     Active Substance: EFAVIRENZ\EMTRICITABINE\TENOFOVIR DISOPROXIL FUMARATE
     Indication: HIV INFECTION
     Dosage: 1 DOSAGE FORM (600?200?300 MG), QD
     Route: 048
     Dates: start: 200701, end: 20190609
  12. TRUVADA [Concomitant]
     Active Substance: EMTRICITABINE\TENOFOVIR DISOPROXIL FUMARATE
  13. VIBERZI [Concomitant]
     Active Substance: ELUXADOLINE
  14. LISINOPRIL. [Concomitant]
     Active Substance: LISINOPRIL
  15. OXYCODONE [Concomitant]
     Active Substance: OXYCODONE
  16. XIFAXAN [Concomitant]
     Active Substance: RIFAXIMIN
  17. SPIRONOLACTONE. [Concomitant]
     Active Substance: SPIRONOLACTONE
  18. VANCOMYCIN [Concomitant]
     Active Substance: VANCOMYCIN
  19. DICYCLOMINE HCL [Concomitant]
     Active Substance: DICYCLOMINE HYDROCHLORIDE
  20. VENTOLIN HFA [Concomitant]
     Active Substance: ALBUTEROL SULFATE
  21. BREO ELLIPTA [Concomitant]
     Active Substance: FLUTICASONE FUROATE\VILANTEROL TRIFENATATE
  22. METRONIDAZOLE. [Concomitant]
     Active Substance: METRONIDAZOLE
  23. KEFLEX [Concomitant]
     Active Substance: CEPHALEXIN
  24. VITAMINS NOS [Concomitant]
     Active Substance: VITAMINS
  25. LOPERAMIDE [Concomitant]
     Active Substance: LOPERAMIDE

REACTIONS (18)
  - Osteoporosis [Unknown]
  - Ammonia increased [Unknown]
  - Anhedonia [Unknown]
  - Renal failure [Unknown]
  - Osteopenia [Unknown]
  - Anxiety [Unknown]
  - Economic problem [Unknown]
  - Wrist fracture [Unknown]
  - Emotional distress [Unknown]
  - Fracture [Unknown]
  - Hepatosplenomegaly [Unknown]
  - Hepatic cirrhosis [Fatal]
  - Chronic kidney disease [Unknown]
  - Bone density decreased [Unknown]
  - Pain [Unknown]
  - Hepatic steatosis [Not Recovered/Not Resolved]
  - Urinary tract infection [Unknown]
  - Platelet count decreased [Unknown]

NARRATIVE: CASE EVENT DATE: 20180213
